FAERS Safety Report 5847753-3 (Version None)
Quarter: 2008Q3

REPORT INFORMATION
  Report Type: 
  Country: None (occurrence: None)
  Receive Date: 20080814
  Receipt Date: 20080814
  Transmission Date: 20090109
  Serious: Yes (Other)
  Sender: FDA-Public Use
  Company Number: None

PATIENT
  Sex: Male
  Weight: 117.4816 kg

DRUGS (2)
  1. BYETTA [Suspect]
     Indication: DIABETES MELLITUS
     Dosage: 5MCG BID SQ  (AM DOSE ONLY ON 7/26)
     Route: 058
     Dates: start: 20080723
  2. BYETTA [Suspect]
     Indication: DIABETES MELLITUS
     Dosage: 5MCG BID SQ  (AM DOSE ONLY ON 7/26)
     Route: 058
     Dates: start: 20080726

REACTIONS (7)
  - BACK PAIN [None]
  - CHEST PAIN [None]
  - HYPOAESTHESIA [None]
  - MUSCULOSKELETAL PAIN [None]
  - NERVE COMPRESSION [None]
  - NO THERAPEUTIC RESPONSE [None]
  - PAIN [None]
